FAERS Safety Report 4940519-8 (Version None)
Quarter: 2006Q1

REPORT INFORMATION
  Report Type: 
  Country: None (occurrence: None)
  Receive Date: 20060112
  Receipt Date: 20051104
  Transmission Date: 20060701
  Serious: Yes (Other)
  Sender: FDA-Public Use
  Company Number: 424080

PATIENT
  Age: 49 Year
  Sex: Male
  Weight: 73.5 kg

DRUGS (5)
  1. FUZEON [Suspect]
     Indication: ACQUIRED IMMUNODEFICIENCY SYNDROME
     Dosage: 1 PER 12 HOUR SUBCUTANEOUS
     Route: 058
     Dates: start: 20000415
  2. ACYCLOVIR [Concomitant]
  3. IMODIUM [Concomitant]
  4. MOTRIN [Concomitant]
  5. CALCITRIOL [Concomitant]

REACTIONS (8)
  - HAEMATURIA [None]
  - INFECTION [None]
  - INJECTION SITE ERYTHEMA [None]
  - INJECTION SITE REACTION [None]
  - LOCAL SWELLING [None]
  - LYMPHADENOPATHY [None]
  - PYREXIA [None]
  - URINARY TRACT INFECTION [None]
